FAERS Safety Report 15009828 (Version 1)
Quarter: 2018Q2

REPORT INFORMATION
  Report Type: Spontaneous
  Country: US (occurrence: US)
  Receive Date: 20180614
  Receipt Date: 20180614
  Transmission Date: 20180711
  Serious: Yes (Hospitalization)
  Sender: FDA-Public Use
  Company Number: US-VIVIMED-2018SP004529

PATIENT

DRUGS (3)
  1. AMLODIPINE [Suspect]
     Active Substance: AMLODIPINE BESYLATE
     Indication: PRODUCT USED FOR UNKNOWN INDICATION
     Dosage: UNK
     Route: 065
  2. GABAPENTIN. [Suspect]
     Active Substance: GABAPENTIN
     Indication: PRODUCT USED FOR UNKNOWN INDICATION
     Dosage: UNK
     Route: 065
  3. WARFARIN [Concomitant]
     Active Substance: WARFARIN
     Indication: PRODUCT USED FOR UNKNOWN INDICATION
     Dosage: UNK
     Route: 065

REACTIONS (12)
  - Cardiogenic shock [Recovered/Resolved]
  - Respiratory failure [Recovered/Resolved]
  - Dyspnoea [Unknown]
  - Lactic acidosis [Unknown]
  - Haemodynamic instability [Recovered/Resolved]
  - Hyperglycaemia [Unknown]
  - Toxicity to various agents [Unknown]
  - Metabolic acidosis [Recovered/Resolved]
  - Hyperkalaemia [Recovered/Resolved]
  - Oliguria [Unknown]
  - Hypotension [Recovered/Resolved]
  - Distributive shock [Recovered/Resolved]
